FAERS Safety Report 6746646-7 (Version None)
Quarter: 2010Q2

REPORT INFORMATION
  Report Type: 
  Country: None (occurrence: None)
  Receive Date: 20100528
  Receipt Date: 20091002
  Transmission Date: 20101027
  Serious: No
  Sender: FDA-Public Use
  Company Number: US-ASTRAZENECA-2009SE31924

PATIENT

DRUGS (4)
  1. PRILOSEC OTC [Suspect]
     Dosage: 1 TABLET, 1 /DAY
     Route: 048
     Dates: start: 20091001, end: 20091001
  2. XANAX [Concomitant]
     Dosage: UNKNOWN
  3. PRINIVIL                           /00894001/ [Concomitant]
     Dosage: UNKNOWN
  4. BUSPAR [Concomitant]
     Dosage: UNKNOWN

REACTIONS (3)
  - ANXIETY [None]
  - FEELING JITTERY [None]
  - INAPPROPRIATE SCHEDULE OF DRUG ADMINISTRATION [None]
